FAERS Safety Report 9405460 (Version 1)
Quarter: 2013Q3

REPORT INFORMATION
  Report Type: Spontaneous
  Country: US (occurrence: US)
  Receive Date: 20130717
  Receipt Date: 20130717
  Transmission Date: 20140515
  Serious: Yes (Life-Threatening, Hospitalization)
  Sender: FDA-Public Use
  Company Number: US-ACTAVIS-2013-12149

PATIENT
  Age: 68 Year
  Sex: Male
  Weight: 95 kg

DRUGS (12)
  1. CALCIUM CARBONATE [Suspect]
     Indication: ABDOMINAL DISCOMFORT
     Dosage: 15-20 TABLETS FOR 5 DAYS, DAILY DOSE OF ELEMENTAL CALCIUM FROM 4.5-6.0 G
     Route: 048
  2. VALSARTAN-HCTZ [Suspect]
     Indication: HYPERTENSION
     Dosage: 320MG/25 MG ONCE DAILY
     Route: 065
  3. AMLODIPINE (UNKNOWN) [Suspect]
     Indication: HYPERTENSION
     Dosage: 10 MG, BID
     Route: 065
  4. ERGOCALCIFEROL [Suspect]
     Indication: PRODUCT USED FOR UNKNOWN INDICATION
     Dosage: 5400 IU, DAILY
     Route: 065
  5. CALCIUM [Suspect]
     Indication: OSTEOARTHRITIS
     Dosage: 1245 MG, DAILY
     Route: 065
  6. ASPIRIN [Concomitant]
     Indication: PRODUCT USED FOR UNKNOWN INDICATION
     Dosage: UNK
     Route: 065
  7. CEFDINIR [Concomitant]
     Indication: SINUSITIS
     Dosage: 300 MG, BID
     Route: 065
  8. COLESEVELAM [Concomitant]
     Indication: PRODUCT USED FOR UNKNOWN INDICATION
     Dosage: UNK
     Route: 065
  9. EZETIMIBE [Concomitant]
     Indication: PRODUCT USED FOR UNKNOWN INDICATION
     Dosage: 10 MG, DAILY
     Route: 065
  10. LANOXIN DIGOXIN [Concomitant]
     Indication: CORONARY ARTERY DISEASE
     Dosage: 0.25 MG, DAILY
     Route: 065
  11. VARDENAFIL [Concomitant]
     Indication: PRODUCT USED FOR UNKNOWN INDICATION
     Dosage: UNK
     Route: 065
  12. MAGNESIUM [Concomitant]
     Indication: PRODUCT USED FOR UNKNOWN INDICATION
     Dosage: 452 MG, DAILY
     Route: 065

REACTIONS (5)
  - Pancreatitis necrotising [Unknown]
  - Abdominal compartment syndrome [Unknown]
  - Acute respiratory distress syndrome [Unknown]
  - Intentional overdose [Unknown]
  - Hypercalcaemia [Unknown]
